FAERS Safety Report 12329335 (Version 1)
Quarter: 2016Q2

REPORT INFORMATION
  Report Type: Report from Study
  Country: US (occurrence: US)
  Receive Date: 20160503
  Receipt Date: 20160503
  Transmission Date: 20160815
  Serious: Yes (Other)
  Sender: FDA-Public Use
  Company Number: US-MDT-ADR-2016-00321

PATIENT
  Age: 66 Year
  Sex: Male

DRUGS (2)
  1. LIORESAL [Suspect]
     Active Substance: BACLOFEN
     Dosage: 73.56 MCG/DAY
     Route: 037
     Dates: start: 20160108
  2. LIORESAL [Suspect]
     Active Substance: BACLOFEN
     Dosage: 77.38MCG/DAY
     Route: 037

REACTIONS (3)
  - Overdose [Recovered/Resolved]
  - Muscular weakness [Recovered/Resolved]
  - Adverse drug reaction [Recovered/Resolved]
